FAERS Safety Report 21972921 (Version 1)
Quarter: 2023Q1

REPORT INFORMATION
  Report Type: Spontaneous
  Country: GB (occurrence: GB)
  Receive Date: 20230209
  Receipt Date: 20230209
  Transmission Date: 20230418
  Serious: Yes (Hospitalization, Other)
  Sender: FDA-Public Use
  Company Number: GB-MHRA-MED-202302031157334550-BJTRY

PATIENT
  Age: 87 Year
  Sex: Female

DRUGS (7)
  1. APIXABAN [Suspect]
     Active Substance: APIXABAN
     Indication: Product used for unknown indication
     Dosage: 5 MILLIGRAM, BID (TWICE DAILY)
     Route: 065
     Dates: end: 20230130
  2. MIRTAZAPINE [Suspect]
     Active Substance: MIRTAZAPINE
     Indication: Agitation
     Dosage: 30 MILLIGRAM, HS (ONCE A DAY AT NIGHT)
     Route: 065
     Dates: start: 20230105
  3. BISOPROLOL [Concomitant]
     Active Substance: BISOPROLOL
     Dosage: UNK
     Route: 065
  4. CARBIMAZOLE [Concomitant]
     Active Substance: CARBIMAZOLE
     Dosage: UNK
     Route: 065
  5. FAMOTIDINE [Concomitant]
     Active Substance: FAMOTIDINE
     Dosage: UNK
     Route: 065
  6. FEXOFENADINE [Concomitant]
     Active Substance: FEXOFENADINE HYDROCHLORIDE
     Dosage: UNK
     Route: 065
  7. MEMANTINE [Concomitant]
     Active Substance: MEMANTINE
     Dosage: UNK
     Route: 065

REACTIONS (3)
  - Fall [Recovered/Resolved]
  - Eye haematoma [Recovering/Resolving]
  - Subarachnoid haemorrhage [Recovering/Resolving]

NARRATIVE: CASE EVENT DATE: 20230130
